FAERS Safety Report 5922561-3 (Version None)
Quarter: 2008Q4

REPORT INFORMATION
  Report Type: 
  Country: None (occurrence: None)
  Receive Date: 20081017
  Receipt Date: 20081009
  Transmission Date: 20090506
  Serious: Yes (Other)
  Sender: FDA-Public Use
  Company Number: PHHY2008CL24417

PATIENT
  Age: 80 Year
  Sex: Female

DRUGS (2)
  1. EXELON [Suspect]
     Indication: AMNESIA
     Dosage: 1.5 MG, QD
     Route: 048
  2. ELCAL D [Suspect]

REACTIONS (3)
  - ABASIA [None]
  - FATIGUE [None]
  - SYNCOPE [None]
